FAERS Safety Report 11350552 (Version 1)
Quarter: 2015Q3

REPORT INFORMATION
  Report Type: Spontaneous
  Country: US (occurrence: None)
  Receive Date: 20150806
  Receipt Date: 20150806
  Transmission Date: 20151125
  Serious: Yes (Life-Threatening, Hospitalization, Disabling)
  Sender: FDA-Public Use
  Company Number: None

PATIENT
  Age: 38 Year
  Sex: Female
  Weight: 49.9 kg

DRUGS (2)
  1. METHADONE [Suspect]
     Active Substance: METHADONE HYDROCHLORIDE
     Indication: ILL-DEFINED DISORDER
     Dosage: TAKEN BY MOUTH
     Route: 048
  2. SYNTHROID [Concomitant]
     Active Substance: LEVOTHYROXINE SODIUM

REACTIONS (10)
  - Myalgia [None]
  - Headache [None]
  - Hangover [None]
  - Malaise [None]
  - Nausea [None]
  - Acute kidney injury [None]
  - Palpitations [None]
  - Incorrect dose administered [None]
  - Rhabdomyolysis [None]
  - Muscular weakness [None]

NARRATIVE: CASE EVENT DATE: 20100128
